FAERS Safety Report 9366872 (Version 1)
Quarter: 2013Q2

REPORT INFORMATION
  Report Type: Spontaneous
  Country: IT (occurrence: None)
  Receive Date: 20130621
  Receipt Date: 20130621
  Transmission Date: 20140414
  Serious: Yes (Hospitalization)
  Sender: FDA-Public Use
  Company Number: SP06758

PATIENT
  Age: 23 Year
  Sex: Female

DRUGS (4)
  1. XIFAXAN [Suspect]
     Indication: DIARRHOEA
     Route: 048
     Dates: start: 20130410, end: 20130411
  2. BACILLUS CLAUSII [Suspect]
     Route: 048
     Dates: start: 20130410, end: 20130413
  3. TACHIPIRINA [Suspect]
     Route: 048
     Dates: start: 20130423, end: 20130423
  4. AULIN [Concomitant]

REACTIONS (3)
  - Face oedema [None]
  - Erythema [None]
  - Pruritus [None]
